FAERS Safety Report 14747076 (Version 1)
Quarter: 2018Q2

REPORT INFORMATION
  Report Type: Spontaneous
  Country: CN (occurrence: CN)
  Receive Date: 20180411
  Receipt Date: 20180411
  Transmission Date: 20180711
  Serious: Yes (Death, Other)
  Sender: FDA-Public Use
  Company Number: CN-PFIZER INC-2018147460

PATIENT
  Age: 4 Month
  Sex: Male

DRUGS (8)
  1. METHYLPREDNISOLONE. [Suspect]
     Active Substance: METHYLPREDNISOLONE
     Indication: HAEMANGIOMA-THROMBOCYTOPENIA SYNDROME
  2. PROPRANOLOL [Concomitant]
     Active Substance: PROPRANOLOL HYDROCHLORIDE
     Indication: HAEMANGIOMA-THROMBOCYTOPENIA SYNDROME
  3. SIROLIMUS. [Concomitant]
     Active Substance: SIROLIMUS
     Indication: HAEMANGIOMA-THROMBOCYTOPENIA SYNDROME
  4. METHYLPREDNISOLONE. [Suspect]
     Active Substance: METHYLPREDNISOLONE
     Indication: KAPOSI^S SARCOMA
     Dosage: 2 MG/KG, DAILY
  5. PREDNISONE. [Concomitant]
     Active Substance: PREDNISONE
     Indication: KAPOSI^S SARCOMA
     Dosage: 3 MG/KG DAILY
  6. PREDNISONE. [Concomitant]
     Active Substance: PREDNISONE
     Indication: HAEMANGIOMA-THROMBOCYTOPENIA SYNDROME
  7. SIROLIMUS. [Concomitant]
     Active Substance: SIROLIMUS
     Indication: KAPOSI^S SARCOMA
     Dosage: 0.1 MG/KG, DAILY
  8. PROPRANOLOL [Concomitant]
     Active Substance: PROPRANOLOL HYDROCHLORIDE
     Indication: KAPOSI^S SARCOMA
     Dosage: 1 MG/KG, DAILY

REACTIONS (2)
  - Pneumonia [Fatal]
  - Immunosuppression [Fatal]
